FAERS Safety Report 5856605-4 (Version None)
Quarter: 2008Q3

REPORT INFORMATION
  Report Type: 
  Country: None (occurrence: None)
  Receive Date: 20080825
  Receipt Date: 20080814
  Transmission Date: 20090109
  Serious: Yes (Death)
  Sender: FDA-Public Use
  Company Number: JP-MERCK-0808USA02877

PATIENT
  Age: 16 Month
  Sex: Female

DRUGS (2)
  1. DECADRON SRC [Suspect]
     Route: 048
     Dates: start: 20040701, end: 20040101
  2. CYCLOSPORINE [Concomitant]
     Route: 065

REACTIONS (2)
  - DRUG INEFFECTIVE [None]
  - EPSTEIN-BARR VIRUS INFECTION [None]
